FAERS Safety Report 8616838-0 (Version None)
Quarter: 2012Q3

REPORT INFORMATION
  Report Type: 
  Country: None (occurrence: None)
  Receive Date: 20120823
  Receipt Date: 20120818
  Transmission Date: 20120928
  Serious: Yes (Other)
  Sender: FDA-Public Use
  Company Number: AU-JNJFOC-20120517615

PATIENT
  Sex: Female

DRUGS (14)
  1. STELARA [Suspect]
     Route: 058
     Dates: start: 20110619
  2. MICARDIS [Concomitant]
     Route: 065
  3. CLARITIN [Concomitant]
     Route: 065
  4. STELARA [Suspect]
     Route: 058
     Dates: start: 20120606
  5. STELARA [Suspect]
     Route: 058
     Dates: start: 20110912
  6. STELARA [Suspect]
     Route: 058
     Dates: start: 20101120
  7. METHOTREXATE [Concomitant]
     Route: 065
  8. STELARA [Suspect]
     Indication: PRODUCT USED FOR UNKNOWN INDICATION
     Route: 058
     Dates: start: 20101217
  9. STELARA [Suspect]
     Route: 058
     Dates: start: 20120221
  10. STELARA [Suspect]
     Route: 058
     Dates: start: 20110311
  11. COLGOUT [Concomitant]
     Route: 065
  12. MOBIC [Concomitant]
     Route: 065
  13. STELARA [Suspect]
     Route: 058
     Dates: start: 20111129
  14. NEXIUM [Concomitant]
     Route: 065

REACTIONS (9)
  - TOOTH INFECTION [None]
  - DISTURBANCE IN ATTENTION [None]
  - INFLUENZA [None]
  - INTRAOCULAR PRESSURE INCREASED [None]
  - VERTIGO [None]
  - SINUSITIS [None]
  - DIZZINESS [None]
  - DRUG INEFFECTIVE [None]
  - PSORIASIS [None]
